FAERS Safety Report 20038378 (Version 1)
Quarter: 2021Q4

REPORT INFORMATION
  Report Type: Spontaneous
  Country: CH (occurrence: CH)
  Receive Date: 20211105
  Receipt Date: 20211105
  Transmission Date: 20220303
  Serious: Yes (Other)
  Sender: FDA-Public Use
  Company Number: CH-AMGEN-CHESP2021170399

PATIENT

DRUGS (3)
  1. PANITUMUMAB [Suspect]
     Active Substance: PANITUMUMAB
     Indication: Colorectal cancer metastatic
     Dosage: 6 MILLIGRAM/KILOGRAM, Q2WK
     Route: 042
  2. CETUXIMAB [Concomitant]
     Active Substance: CETUXIMAB
     Indication: Colorectal cancer metastatic
     Dosage: 400 MILLIGRAM/SQ. METER OVER 2 HOURS
  3. CETUXIMAB [Concomitant]
     Active Substance: CETUXIMAB
     Dosage: 250 MILLIGRAM/SQ. METER OVER 1 HOUR

REACTIONS (3)
  - Colorectal cancer metastatic [Unknown]
  - Gene mutation [Unknown]
  - Therapy partial responder [Unknown]
